FAERS Safety Report 9919825 (Version 1)
Quarter: 2014Q1

REPORT INFORMATION
  Report Type: Spontaneous
  Country: None (occurrence: DE)
  Receive Date: 20140224
  Receipt Date: 20140224
  Transmission Date: 20141002
  Serious: Yes (Other)
  Sender: FDA-Public Use
  Company Number: DE-TEVA-462999GER

PATIENT
  Age: 32 Year
  Sex: Female

DRUGS (2)
  1. PACLITAXEL [Suspect]
     Indication: BREAST CANCER METASTATIC
  2. TRASTUZUMAB [Suspect]
     Indication: BREAST CANCER METASTATIC

REACTIONS (1)
  - Oligohydramnios [Unknown]
